FAERS Safety Report 4750139-6 (Version None)
Quarter: 2005Q3

REPORT INFORMATION
  Report Type: 
  Country: None (occurrence: None)
  Receive Date: 20050823
  Receipt Date: 20050810
  Transmission Date: 20060218
  Serious: Yes (Hospitalization)
  Sender: FDA-Public Use
  Company Number: IT-BOEHRINGER INGELHEIM PHARMACEUTICALS, INC.-2005-DE-03138GD

PATIENT
  Age: 68 Year
  Sex: Female

DRUGS (3)
  1. PRAMIPEXOLE [Suspect]
     Indication: PARKINSON'S DISEASE
  2. ROPINIROLE [Suspect]
     Indication: PARKINSON'S DISEASE
  3. L-DOPA [Concomitant]
     Indication: PARKINSON'S DISEASE

REACTIONS (2)
  - AKINESIA [None]
  - NEUROLEPTIC MALIGNANT SYNDROME [None]
